FAERS Safety Report 4586904-8 (Version None)
Quarter: 2005Q1

REPORT INFORMATION
  Report Type: 
  Country: None (occurrence: None)
  Receive Date: 20050216
  Receipt Date: 20050216
  Transmission Date: 20050727
  Serious: No
  Sender: FDA-Public Use
  Company Number: None

PATIENT
  Age: 66 Year
  Sex: Male
  Weight: 76.6579 kg

DRUGS (1)
  1. RANITIDINE [Suspect]
     Indication: PEPTIC ULCER
     Dosage: 300 MG QD
     Dates: start: 20040609

REACTIONS (3)
  - GASTROOESOPHAGEAL REFLUX DISEASE [None]
  - PAIN [None]
  - PHARMACEUTICAL PRODUCT COMPLAINT [None]
